FAERS Safety Report 12168319 (Version 3)
Quarter: 2016Q2

REPORT INFORMATION
  Report Type: Report from Study
  Country: JP (occurrence: JP)
  Receive Date: 20160310
  Receipt Date: 20160609
  Transmission Date: 20160815
  Serious: Yes (Hospitalization)
  Sender: FDA-Public Use
  Company Number: JP-BRISTOL-MYERS SQUIBB COMPANY-BMS-2016-015376

PATIENT
  Age: 73 Year
  Sex: Female
  Weight: 43.7 kg

DRUGS (8)
  1. PROTECADIN [Concomitant]
     Active Substance: LAFUTIDINE
     Indication: PRODUCT USED FOR UNKNOWN INDICATION
     Dosage: 10 MG, QD
     Route: 048
  2. ASUNAPREVIR [Suspect]
     Active Substance: ASUNAPREVIR
     Dosage: 100 MG, QD
     Route: 065
     Dates: start: 20150315, end: 20150415
  3. ASUNAPREVIR [Suspect]
     Active Substance: ASUNAPREVIR
     Dosage: 100 UNK, UNK
     Route: 065
     Dates: start: 20150416, end: 20150421
  4. ASUNAPREVIR [Suspect]
     Active Substance: ASUNAPREVIR
     Indication: CHRONIC HEPATITIS C
     Dosage: 100 MG, BID
     Route: 065
     Dates: start: 20150325, end: 20150413
  5. ASUNAPREVIR [Suspect]
     Active Substance: ASUNAPREVIR
     Dosage: 100 MG, UNK
     Route: 065
     Dates: start: 20150617, end: 20150909
  6. ASUNAPREVIR [Suspect]
     Active Substance: ASUNAPREVIR
     Dosage: 100 MG, QD
     Route: 065
     Dates: start: 20150422, end: 20150616
  7. DACLATASVIR DIHYDROCHLORIDE [Suspect]
     Active Substance: DACLATASVIR DIHYDROCHLORIDE
     Indication: CHRONIC HEPATITIS C
     Dosage: 60 MG, QD
     Route: 065
     Dates: start: 20150325
  8. DACLATASVIR DIHYDROCHLORIDE [Suspect]
     Active Substance: DACLATASVIR DIHYDROCHLORIDE
     Dosage: 60 MG, QD
     Route: 065
     Dates: start: 20150325, end: 20150909

REACTIONS (3)
  - Diarrhoea [Recovered/Resolved]
  - Vomiting [Recovered/Resolved]
  - Off label use [Unknown]

NARRATIVE: CASE EVENT DATE: 20150412
